FAERS Safety Report 4655845-X (Version None)
Quarter: 2005Q2

REPORT INFORMATION
  Report Type: 
  Country: None (occurrence: None)
  Receive Date: 20050505
  Receipt Date: 20050422
  Transmission Date: 20051028
  Serious: Yes (Hospitalization)
  Sender: FDA-Public Use
  Company Number: 2005065424

PATIENT
  Age: 45 Year
  Sex: Female

DRUGS (2)
  1. NARDIL [Suspect]
     Indication: ILL-DEFINED DISORDER
     Dosage: 75 MG (1 D)
  2. ETHANOL (ETHANOL) [Suspect]
     Indication: ILL-DEFINED DISORDER

REACTIONS (12)
  - AGGRESSION [None]
  - BLOOD PRESSURE FLUCTUATION [None]
  - BODY TEMPERATURE INCREASED [None]
  - BORDERLINE PERSONALITY DISORDER [None]
  - CONFUSIONAL STATE [None]
  - DIZZINESS [None]
  - EMOTIONAL DISORDER [None]
  - FEELING ABNORMAL [None]
  - MANIA [None]
  - OFF LABEL USE [None]
  - SYNCOPE [None]
  - TREMOR [None]
